FAERS Safety Report 6147971-3 (Version None)
Quarter: 2009Q2

REPORT INFORMATION
  Report Type: 
  Country: None (occurrence: None)
  Receive Date: 20090408
  Receipt Date: 20090402
  Transmission Date: 20091009
  Serious: Yes (Death, Hospitalization, Other)
  Sender: FDA-Public Use
  Company Number: DE-ROCHE-621125

PATIENT
  Sex: Female

DRUGS (10)
  1. METHOXY POLYETHYLENE GLYCOL-EPOETIN BETA [Suspect]
     Indication: DRUG USE FOR UNKNOWN INDICATION
     Route: 065
  2. SIMVASTATIN [Concomitant]
     Indication: DRUG USE FOR UNKNOWN INDICATION
     Dosage: DOSE: 0-0-1-0-0; FORM: FILM COATED TABLET (FCT)
     Dates: start: 20090130
  3. AAS [Concomitant]
     Dosage: DOSE: 0-1-0-0-0
     Dates: start: 20080229
  4. BISOPROLOL [Concomitant]
     Dosage: DOSE: 1/2-0-0-0-0; FORM: FILM COATED TABLET (FCT)
     Dates: start: 20081107
  5. TORSEMIDE [Concomitant]
     Dosage: DOSE: 1/2-0-0-0-0; FORM: FILM COATED TABLET (FCT)
     Dates: start: 20080609
  6. RANITIDINE HCL [Concomitant]
     Dosage: DOSE: 0-0-1-0-0; FORM: FILM COATED TABLET (FCT)
     Dates: start: 20080307
  7. TARGIN [Concomitant]
     Dosage: TARGIN 10/5 MG; FORM: RETARD TABLET, DOSE: 1-0-1-0-0
     Dates: start: 20080307
  8. DREISAVIT N [Concomitant]
     Dosage: DOSE: 0-1-0-0-0; FORM: FILM COATED TABLET (FCT)
     Dates: start: 20080328
  9. CALCIUM ACETATE [Concomitant]
     Dosage: DOSE: 2-2-2-0-0; FORM: FILM COATED TABLET (FCT)
     Dates: start: 20090204
  10. PLAVIX [Concomitant]

REACTIONS (6)
  - ACUTE CORONARY SYNDROME [None]
  - CARDIAC ARREST [None]
  - ELECTROLYTE IMBALANCE [None]
  - FALL [None]
  - FEMORAL NECK FRACTURE [None]
  - HAEMOLYTIC ANAEMIA [None]
